FAERS Safety Report 16588759 (Version 2)
Quarter: 2019Q3

REPORT INFORMATION
  Report Type: Spontaneous
  Country: US (occurrence: US)
  Receive Date: 20190718
  Receipt Date: 20190731
  Transmission Date: 20191004
  Serious: Yes (Life-Threatening, Hospitalization)
  Sender: FDA-Public Use
  Company Number: US-VIFOR (INTERNATIONAL) INC.-VIT-2019-06984

PATIENT
  Age: 65 Year
  Sex: Male
  Weight: 73 kg

DRUGS (6)
  1. MIRCERA [Suspect]
     Active Substance: METHOXY POLYETHYLENE GLYCOL-EPOETIN BETA
     Indication: NEPHROGENIC ANAEMIA
     Dosage: FIRST DOSE
     Route: 040
     Dates: start: 20190427
  2. MIRCERA [Suspect]
     Active Substance: METHOXY POLYETHYLENE GLYCOL-EPOETIN BETA
     Dosage: SECOND DOSE
     Route: 040
     Dates: start: 20190511, end: 2019
  3. HECTOROL [Concomitant]
     Active Substance: DOXERCALCIFEROL
     Dosage: FIFTH DOSE
     Route: 040
     Dates: start: 20190427
  4. VENOFER [Suspect]
     Active Substance: IRON SUCROSE
     Dosage: SEVENTH DOSE
     Route: 040
     Dates: start: 20190511
  5. HECTOROL [Concomitant]
     Active Substance: DOXERCALCIFEROL
     Route: 040
  6. VENOFER [Suspect]
     Active Substance: IRON SUCROSE
     Indication: IRON DEFICIENCY
     Dosage: FIRST DOSE, EVERY TREATMENT
     Route: 040
     Dates: start: 20190427

REACTIONS (4)
  - Cardiac arrest [Recovered/Resolved]
  - Blood pressure systolic increased [Unknown]
  - Anaphylactic reaction [Recovered/Resolved]
  - Unresponsive to stimuli [Unknown]

NARRATIVE: CASE EVENT DATE: 20190427
